FAERS Safety Report 4539701-3 (Version None)
Quarter: 2004Q4

REPORT INFORMATION
  Report Type: 
  Country: None (occurrence: None)
  Receive Date: 20041228
  Receipt Date: 20041213
  Transmission Date: 20050328
  Serious: Yes (Hospitalization, Other)
  Sender: FDA-Public Use
  Company Number: EMADSS2003003136

PATIENT
  Sex: Female
  Weight: 46.9 kg

DRUGS (3)
  1. TOPAMAX [Suspect]
     Indication: EPILEPSY
     Route: 049
     Dates: start: 20030206, end: 20030216
  2. TRAMADOL HCL [Suspect]
     Route: 065
  3. MORPHINE SULFATE [Concomitant]
     Route: 049

REACTIONS (2)
  - PANCREATITIS [None]
  - PANCREATITIS ACUTE [None]
